FAERS Safety Report 4288582-4 (Version None)
Quarter: 2004Q1

REPORT INFORMATION
  Report Type: 
  Country: None (occurrence: None)
  Receive Date: 20040209
  Receipt Date: 20040130
  Transmission Date: 20041129
  Serious: Yes (Hospitalization)
  Sender: FDA-Public Use
  Company Number: US-ROCHE-357777

PATIENT
  Age: 78 Year
  Sex: Male

DRUGS (2)
  1. TAMIFLU [Suspect]
     Route: 048
     Dates: start: 20040102, end: 20040103
  2. ANTIBIOTICS NOS [Concomitant]

REACTIONS (1)
  - LOSS OF CONSCIOUSNESS [None]
